FAERS Safety Report 17788635 (Version 1)
Quarter: 2020Q2

REPORT INFORMATION
  Report Type: Spontaneous
  Country: US (occurrence: US)
  Receive Date: 20200514
  Receipt Date: 20200514
  Transmission Date: 20200714
  Serious: No
  Sender: FDA-Public Use
  Company Number: US-EISAI MEDICAL RESEARCH-EC-2020-073956

PATIENT
  Sex: Male

DRUGS (1)
  1. LENVIMA [Suspect]
     Active Substance: LENVATINIB
     Indication: BONE CANCER METASTATIC
     Route: 048
     Dates: start: 202003

REACTIONS (3)
  - Pain in extremity [Unknown]
  - Rash [Unknown]
  - Fungal infection [Unknown]
